FAERS Safety Report 11775052 (Version 4)
Quarter: 2016Q4

REPORT INFORMATION
  Report Type: Report from Study
  Country: US (occurrence: US)
  Receive Date: 20151124
  Receipt Date: 20161201
  Transmission Date: 20170206
  Serious: Yes (Hospitalization)
  Sender: FDA-Public Use
  Company Number: US-ACTELION-A-US2015-127774

PATIENT
  Age: 61 Year
  Sex: Female

DRUGS (5)
  1. VELETRI [Suspect]
     Active Substance: EPOPROSTENOL
     Indication: PULMONARY ARTERIAL HYPERTENSION
     Dosage: 36 NG/KG, PER MIN
     Route: 042
     Dates: start: 20141013
  2. INFLUENZA VACCINE [Concomitant]
     Active Substance: INFLUENZA VIRUS VACCINE
  3. XARELTO [Concomitant]
     Active Substance: RIVAROXABAN
  4. VARICELLA ZOSTER VACCINE [Concomitant]
     Active Substance: VARICELLA-ZOSTER VIRUS STRAIN OKA/MERCK LIVE ANTIGEN
  5. TRACLEER [Suspect]
     Active Substance: BOSENTAN
     Indication: PULMONARY ARTERIAL HYPERTENSION
     Dosage: 125 MG, BID
     Route: 048
     Dates: start: 20100726

REACTIONS (21)
  - Back pain [Unknown]
  - Myalgia [Unknown]
  - Disease progression [Recovering/Resolving]
  - Influenza like illness [Unknown]
  - Arthritis [Unknown]
  - Scab [Unknown]
  - Aortic stenosis [Recovering/Resolving]
  - Respiratory failure [Recovering/Resolving]
  - Exercise tolerance decreased [Recovering/Resolving]
  - Muscle tightness [Unknown]
  - Musculoskeletal discomfort [Unknown]
  - Vasodilatation [Unknown]
  - Acute respiratory failure [Recovering/Resolving]
  - Nasopharyngitis [Unknown]
  - Infection [Unknown]
  - Dyspnoea [Recovering/Resolving]
  - Hypoxia [Recovering/Resolving]
  - Fatigue [Recovering/Resolving]
  - Neck pain [Unknown]
  - Pain in extremity [Unknown]
  - Muscle spasms [Unknown]

NARRATIVE: CASE EVENT DATE: 20161003
